FAERS Safety Report 20980866 (Version 1)
Quarter: 2022Q2

REPORT INFORMATION
  Report Type: Spontaneous
  Country: CN (occurrence: CN)
  Receive Date: 20220620
  Receipt Date: 20220620
  Transmission Date: 20220721
  Serious: Yes (Other)
  Sender: FDA-Public Use
  Company Number: None

PATIENT
  Age: 32 Year
  Sex: Female
  Weight: 68 kg

DRUGS (8)
  1. CYCLOPHOSPHAMIDE [Suspect]
     Active Substance: CYCLOPHOSPHAMIDE
     Indication: Invasive ductal breast carcinoma
     Dosage: 1 G, QD, CYCLOPHOSPHAMIDE(1G) WITH SODIUM CHLORIDE (500ML)
     Route: 041
     Dates: start: 20220324, end: 20220325
  2. CYCLOPHOSPHAMIDE [Suspect]
     Active Substance: CYCLOPHOSPHAMIDE
     Dosage: UNK, QD, (DOSE RE-INTRODUCED)
     Route: 041
  3. DOXORUBICIN HYDROCHLORIDE [Suspect]
     Active Substance: DOXORUBICIN HYDROCHLORIDE
     Indication: Invasive ductal breast carcinoma
     Dosage: 50 MG, QD,DOXORUBICIN HYDROCHLORIDE (50MG) WITH SODIUM CHLORIDE (100ML)
     Route: 041
     Dates: start: 20220324, end: 20220326
  4. DOXORUBICIN HYDROCHLORIDE [Suspect]
     Active Substance: DOXORUBICIN HYDROCHLORIDE
     Dosage: UNK, QD, (DOSE RE-INTRODUCED)
     Route: 041
  5. SODIUM CHLORIDE [Suspect]
     Active Substance: SODIUM CHLORIDE
     Indication: Medication dilution
     Dosage: 500 ML, QD, CYCLOPHOSPHAMIDE(1G) WITH SODIUM CHLORIDE (500ML)
     Route: 041
     Dates: start: 20220324, end: 20220325
  6. SODIUM CHLORIDE [Suspect]
     Active Substance: SODIUM CHLORIDE
     Dosage: UNK, QD, (DOSE RE-INTRODUCED) WITH CYCLOPHOSPHAMIDE
     Route: 041
  7. SODIUM CHLORIDE [Suspect]
     Active Substance: SODIUM CHLORIDE
     Dosage: 100 ML, QD, DOXORUBICIN HYDROCHLORIDE (50MG) WITH SODIUM CHLORIDE (100ML)
     Route: 041
     Dates: start: 20220324, end: 20220326
  8. SODIUM CHLORIDE [Suspect]
     Active Substance: SODIUM CHLORIDE
     Dosage: UNK, QD, (DOSE RE-INTRODUCED) WITH DOXORUBICIN HYDROCHLORIDE
     Route: 041

REACTIONS (1)
  - Myelosuppression [Recovered/Resolved]

NARRATIVE: CASE EVENT DATE: 20220410
